FAERS Safety Report 9824016 (Version 2)
Quarter: 2014Q1

REPORT INFORMATION
  Report Type: Spontaneous
  Country: US (occurrence: US)
  Receive Date: 20140116
  Receipt Date: 20140116
  Transmission Date: 20141002
  Serious: No
  Sender: FDA-Public Use
  Company Number: US-GILEAD-2011-0038205

PATIENT
  Age: 80 Year
  Sex: Male

DRUGS (1)
  1. LETAIRIS [Suspect]
     Indication: PRODUCT USED FOR UNKNOWN INDICATION
     Route: 048
     Dates: start: 20110329, end: 20110429

REACTIONS (6)
  - Condition aggravated [Unknown]
  - Hypotension [Not Recovered/Not Resolved]
  - Fluid retention [Not Recovered/Not Resolved]
  - Local swelling [Not Recovered/Not Resolved]
  - Dyspnoea [Not Recovered/Not Resolved]
  - Dyspnoea [Unknown]
